FAERS Safety Report 10343914 (Version 5)
Quarter: 2014Q3

REPORT INFORMATION
  Report Type: Report from Study
  Country: CA (occurrence: CA)
  Receive Date: 20140727
  Receipt Date: 20140916
  Transmission Date: 20150326
  Serious: Yes (Disabling)
  Sender: FDA-Public Use
  Company Number: PHHY2014CA091509

PATIENT
  Age: 86 Year
  Sex: Female

DRUGS (11)
  1. ACLASTA [Suspect]
     Active Substance: ZOLEDRONIC ACID
     Indication: OSTEOPOROSIS
     Dosage: UNK (5MG/100ML), YEARLY
     Route: 042
     Dates: start: 20110222
  2. ASA [Concomitant]
     Active Substance: ASPIRIN
     Dosage: UNK
  3. ALLOPURINOL. [Concomitant]
     Active Substance: ALLOPURINOL
     Dosage: UNK
  4. DEXILANT [Concomitant]
     Active Substance: DEXLANSOPRAZOLE
     Dosage: 60 UKN, BID
  5. EURO-D [Concomitant]
     Dosage: UNK UKN, QW
  6. ACLASTA [Suspect]
     Active Substance: ZOLEDRONIC ACID
     Dosage: UNK (5MG/100ML), YEARLY
     Route: 042
     Dates: start: 20120221
  7. ACLASTA [Suspect]
     Active Substance: ZOLEDRONIC ACID
     Dosage: UNK (5MG/100ML), YEARLY
     Route: 042
     Dates: start: 20130221
  8. CALCIUM [Concomitant]
     Active Substance: CALCIUM
     Dosage: UNK
  9. SYMBICORT [Concomitant]
     Active Substance: BUDESONIDE\FORMOTEROL FUMARATE DIHYDRATE
     Dosage: UNK
  10. TYLENOL [Concomitant]
     Active Substance: ACETAMINOPHEN
     Dosage: UNK
  11. LOZIDE [Concomitant]
     Active Substance: INDAPAMIDE
     Dosage: UNK

REACTIONS (9)
  - Exostosis [Unknown]
  - Pain in extremity [Recovering/Resolving]
  - Osteoarthritis [Unknown]
  - Traumatic fracture [Recovering/Resolving]
  - Atypical femur fracture [Recovering/Resolving]
  - Scoliosis [Unknown]
  - Intervertebral disc compression [Unknown]
  - Bone density decreased [Unknown]
  - Kyphosis [Unknown]

NARRATIVE: CASE EVENT DATE: 20131206
